FAERS Safety Report 7099286-7 (Version None)
Quarter: 2010Q4

REPORT INFORMATION
  Report Type: 
  Country: None (occurrence: None)
  Receive Date: 20101104
  Receipt Date: 20101025
  Transmission Date: 20110411
  Serious: Yes (Other)
  Sender: FDA-Public Use
  Company Number: 019953

PATIENT
  Age: 28 Year
  Sex: Female

DRUGS (4)
  1. KEPPRA [Suspect]
     Dosage: (3000 MG ORAL)
     Route: 048
     Dates: start: 20100320
  2. LAMOTRIGINE [Concomitant]
  3. HORMONAL CONTRACEPTIVES FOR SYSTEMIC USE [Concomitant]
  4. TRILEPTAL [Concomitant]

REACTIONS (7)
  - COMPLEX PARTIAL SEIZURES [None]
  - DRUG EXPOSURE DURING PREGNANCY [None]
  - GRAND MAL CONVULSION [None]
  - MALAISE [None]
  - PREGNANCY [None]
  - PREMATURE LABOUR [None]
  - SIMPLE PARTIAL SEIZURES [None]
